FAERS Safety Report 17291836 (Version 1)
Quarter: 2020Q1

REPORT INFORMATION
  Report Type: Report from Study
  Country: VN (occurrence: VN)
  Receive Date: 20200121
  Receipt Date: 20200121
  Transmission Date: 20200409
  Serious: Yes (Hospitalization)
  Sender: FDA-Public Use
  Company Number: VN-BAYER-2019-217387

PATIENT
  Age: 71 Year
  Sex: Male

DRUGS (1)
  1. NEXAVAR [Suspect]
     Active Substance: SORAFENIB
     Dosage: DAILY DOSE 800 MG
     Route: 048
     Dates: start: 20190927, end: 20191028

REACTIONS (6)
  - Fatigue [None]
  - Lip blister [None]
  - Diarrhoea [None]
  - Gastrointestinal haemorrhage [None]
  - Oral mucosal blistering [None]
  - Hypophagia [None]

NARRATIVE: CASE EVENT DATE: 20191028
